FAERS Safety Report 12421657 (Version 3)
Quarter: 2016Q3

REPORT INFORMATION
  Report Type: Spontaneous
  Country: US (occurrence: US)
  Receive Date: 20160531
  Receipt Date: 20160728
  Transmission Date: 20161109
  Serious: No
  Sender: FDA-Public Use
  Company Number: US-009507513-1605USA011554

PATIENT
  Sex: Female

DRUGS (1)
  1. ETONOGESTREL IMPLANT- UNKNOWN [Suspect]
     Active Substance: ETONOGESTREL
     Dosage: 1 ROD / EVERY 3 YEARS
     Route: 059
     Dates: start: 2011

REACTIONS (2)
  - Incorrect drug administration duration [Unknown]
  - Complication associated with device [Not Recovered/Not Resolved]

NARRATIVE: CASE EVENT DATE: 2014
